FAERS Safety Report 22885034 (Version 2)
Quarter: 2025Q3

REPORT INFORMATION
  Report Type: Spontaneous
  Country: CA (occurrence: CA)
  Receive Date: 20230830
  Receipt Date: 20250926
  Transmission Date: 20251020
  Serious: Yes (Hospitalization, Other)
  Sender: SANDOZ
  Company Number: CA-002147023-NVSC2023CA058863

PATIENT
  Age: 71 Year
  Sex: Female
  Weight: 89 kg

DRUGS (89)
  1. ACETAMINOPHEN [Suspect]
     Active Substance: ACETAMINOPHEN
     Indication: Product used for unknown indication
     Route: 065
  2. ALPRAZOLAM [Suspect]
     Active Substance: ALPRAZOLAM
     Indication: Product used for unknown indication
     Route: 065
  3. AMOXICILLIN TRIHYDRATE [Suspect]
     Active Substance: AMOXICILLIN
     Indication: Product used for unknown indication
     Route: 065
  4. ATORVASTATIN CALCIUM [Suspect]
     Active Substance: ATORVASTATIN CALCIUM
     Indication: Product used for unknown indication
     Route: 065
  5. AZITHROMYCIN [Suspect]
     Active Substance: AZITHROMYCIN
     Indication: Product used for unknown indication
     Route: 065
  6. ACETAMINOPHEN\PROPOXYPHENE HYDROCHLORIDE [Suspect]
     Active Substance: ACETAMINOPHEN\PROPOXYPHENE HYDROCHLORIDE
     Indication: Product used for unknown indication
     Route: 065
  7. ACETAMINOPHEN\PHENYLEPHRINE HYDROCHLORIDE [Suspect]
     Active Substance: ACETAMINOPHEN\PHENYLEPHRINE HYDROCHLORIDE
     Indication: Product used for unknown indication
     Route: 065
  8. ACETIC ACID\TRIAMCINOLONE [Suspect]
     Active Substance: ACETIC ACID\TRIAMCINOLONE
     Indication: Product used for unknown indication
     Route: 065
  9. ASPIRIN [Suspect]
     Active Substance: ASPIRIN
     Indication: Product used for unknown indication
     Route: 065
  10. AMBROXOL HYDROCHLORIDE [Suspect]
     Active Substance: AMBROXOL HYDROCHLORIDE
     Indication: Product used for unknown indication
     Route: 065
  11. BISACODYL [Suspect]
     Active Substance: BISACODYL
     Indication: Product used for unknown indication
     Route: 065
  12. BUDESONIDE [Suspect]
     Active Substance: BUDESONIDE
     Indication: Product used for unknown indication
     Route: 065
  13. BENZYDAMINE [Suspect]
     Active Substance: BENZYDAMINE
     Indication: Product used for unknown indication
     Route: 065
  14. BETAMETHASONE DIPROPIONATE [Suspect]
     Active Substance: BETAMETHASONE DIPROPIONATE
     Indication: Product used for unknown indication
     Route: 065
  15. BETAMETHASONE VALERATE [Suspect]
     Active Substance: BETAMETHASONE VALERATE
     Indication: Product used for unknown indication
     Route: 065
  16. CETIRIZINE HYDROCHLORIDE [Suspect]
     Active Substance: CETIRIZINE HYDROCHLORIDE
     Indication: Product used for unknown indication
     Route: 065
  17. CIPROFLOXACIN [Suspect]
     Active Substance: CIPROFLOXACIN
     Indication: Product used for unknown indication
     Route: 065
  18. CIPROFLOXACIN HYDROCHLORIDE [Suspect]
     Active Substance: CIPROFLOXACIN HYDROCHLORIDE
     Indication: Product used for unknown indication
     Route: 065
  19. CLARITHROMYCIN [Suspect]
     Active Substance: CLARITHROMYCIN
     Indication: Product used for unknown indication
     Route: 065
  20. CLOTRIMAZOLE [Suspect]
     Active Substance: CLOTRIMAZOLE
     Indication: Product used for unknown indication
     Route: 065
  21. CALCIUM [Suspect]
     Active Substance: CALCIUM
     Indication: Product used for unknown indication
     Route: 065
  22. CITRIC ACID [Suspect]
     Active Substance: CITRIC ACID MONOHYDRATE
     Indication: Product used for unknown indication
     Route: 065
  23. CORTENEMA [Suspect]
     Active Substance: HYDROCORTISONE
     Indication: Product used for unknown indication
     Route: 065
  24. DESONIDE [Suspect]
     Active Substance: DESONIDE
     Indication: Product used for unknown indication
     Route: 065
  25. DIPHENHYDRAMINE HYDROCHLORIDE [Suspect]
     Active Substance: DIPHENHYDRAMINE HYDROCHLORIDE
     Indication: Product used for unknown indication
     Route: 065
  26. DIPHENOXYLATE HYDROCHLORIDE AND ATROPINE SULFATE [Suspect]
     Active Substance: ATROPINE SULFATE\DIPHENOXYLATE HYDROCHLORIDE
     Indication: Product used for unknown indication
     Route: 065
  27. ENTYVIO [Suspect]
     Active Substance: VEDOLIZUMAB
     Indication: Product used for unknown indication
     Route: 042
  28. ERTAPENEM SODIUM [Suspect]
     Active Substance: ERTAPENEM SODIUM
     Indication: Product used for unknown indication
     Route: 065
  29. FENTANYL [Suspect]
     Active Substance: FENTANYL
     Indication: Product used for unknown indication
     Route: 065
  30. FENTANYL CITRATE [Suspect]
     Active Substance: FENTANYL CITRATE
     Indication: Product used for unknown indication
     Route: 065
  31. FLUCONAZOLE [Suspect]
     Active Substance: FLUCONAZOLE
     Indication: Product used for unknown indication
     Route: 065
  32. FLUTICASONE PROPIONATE [Suspect]
     Active Substance: FLUTICASONE PROPIONATE
     Indication: Product used for unknown indication
     Route: 065
  33. FRAMYCETIN SULFATE [Suspect]
     Active Substance: FRAMYCETIN SULFATE
     Indication: Product used for unknown indication
     Route: 065
  34. FRUCTOSE [Suspect]
     Active Substance: FRUCTOSE
     Indication: Product used for unknown indication
     Route: 065
  35. GLYCERIN [Suspect]
     Active Substance: GLYCERIN
     Indication: Product used for unknown indication
     Route: 048
  36. GLYCERIN [Suspect]
     Active Substance: GLYCERIN
     Indication: Product used for unknown indication
     Route: 065
  37. NITROGLYCERIN [Suspect]
     Active Substance: NITROGLYCERIN
     Indication: Product used for unknown indication
     Route: 065
  38. HYDROCHLOROTHIAZIDE [Suspect]
     Active Substance: HYDROCHLOROTHIAZIDE
     Route: 065
  39. HYDROCHLOROTHIAZIDE [Suspect]
     Active Substance: HYDROCHLOROTHIAZIDE
     Indication: Product used for unknown indication
     Route: 065
  40. HYDROCORTISONE [Suspect]
     Active Substance: HYDROCORTISONE
     Indication: Product used for unknown indication
     Route: 065
  41. HUMIRA [Suspect]
     Active Substance: ADALIMUMAB
     Indication: Crohn^s disease
     Route: 058
  42. HYDROMORPHONE HYDROCHLORIDE [Suspect]
     Active Substance: HYDROMORPHONE HYDROCHLORIDE
     Indication: Crohn^s disease
     Route: 065
  43. LOPERAMIDE HYDROCHLORIDE [Suspect]
     Active Substance: LOPERAMIDE HYDROCHLORIDE
     Dosage: 1 DOSAGE FORM, QD (4 EVERY 1 DAYS)
     Route: 048
  44. LOPERAMIDE HYDROCHLORIDE [Suspect]
     Active Substance: LOPERAMIDE HYDROCHLORIDE
     Indication: Product used for unknown indication
     Route: 048
  45. MAGNESIUM SULFATE [Suspect]
     Active Substance: MAGNESIUM SULFATE
     Indication: Product used for unknown indication
     Route: 042
  46. MAGNESIUM SULFATE [Suspect]
     Active Substance: MAGNESIUM SULFATE
     Indication: Product used for unknown indication
     Route: 042
  47. MAGNESIUM SULFATE [Suspect]
     Active Substance: MAGNESIUM SULFATE
     Route: 042
  48. MAGNESIUM SULFATE [Suspect]
     Active Substance: MAGNESIUM SULFATE
     Route: 065
  49. METRONIDAZOLE [Suspect]
     Active Substance: METRONIDAZOLE
     Indication: Product used for unknown indication
     Route: 065
  50. MIDAZOLAM [Suspect]
     Active Substance: MIDAZOLAM
     Indication: Product used for unknown indication
     Route: 065
  51. MORPHINE SULFATE [Suspect]
     Active Substance: MORPHINE SULFATE
     Indication: Product used for unknown indication
     Route: 065
  52. MORPHINE SULFATE [Suspect]
     Active Substance: MORPHINE SULFATE
     Route: 065
  53. MUPIROCIN [Suspect]
     Active Substance: MUPIROCIN
     Indication: Product used for unknown indication
     Route: 061
  54. MAGNESIUM [Suspect]
     Active Substance: MAGNESIUM
     Indication: Product used for unknown indication
     Route: 065
  55. MAGNESIUM CARBONATE [Suspect]
     Active Substance: MAGNESIUM CARBONATE
     Indication: Product used for unknown indication
     Route: 065
  56. MESALAMINE [Suspect]
     Active Substance: MESALAMINE
     Indication: Product used for unknown indication
     Dosage: 1 DOSAGE FORM, TID
     Route: 065
  57. METHYLPREDNISOLONE SODIUM SUCCINATE [Suspect]
     Active Substance: METHYLPREDNISOLONE SODIUM SUCCINATE
     Indication: Product used for unknown indication
     Route: 065
  58. METHYLPREDNISOLONE SODIUM SUCCINATE [Suspect]
     Active Substance: METHYLPREDNISOLONE SODIUM SUCCINATE
     Route: 065
  59. NADOLOL [Suspect]
     Active Substance: NADOLOL
     Indication: Product used for unknown indication
     Route: 065
  60. NICODERM CQ [Suspect]
     Active Substance: NICOTINE
     Indication: Product used for unknown indication
     Route: 065
  61. NICOTINAMIDE [Suspect]
     Active Substance: NIACINAMIDE
     Indication: Product used for unknown indication
     Route: 065
  62. NICOTINE [Suspect]
     Active Substance: NICOTINE
     Indication: Product used for unknown indication
     Route: 065
  63. NICOTINE [Suspect]
     Active Substance: NICOTINE
     Route: 065
  64. OXYBUTYNIN CHLORIDE [Suspect]
     Active Substance: OXYBUTYNIN CHLORIDE
     Indication: Product used for unknown indication
     Route: 065
  65. OXYBUTYNIN CHLORIDE [Suspect]
     Active Substance: OXYBUTYNIN CHLORIDE
     Route: 065
  66. PANTOPRAZOLE [Suspect]
     Active Substance: PANTOPRAZOLE
     Indication: Product used for unknown indication
     Route: 065
  67. POTASSIUM CHLORIDE [Suspect]
     Active Substance: POTASSIUM CHLORIDE
     Indication: Product used for unknown indication
     Route: 065
  68. PREDNISONE [Suspect]
     Active Substance: PREDNISONE
     Indication: Product used for unknown indication
     Route: 065
  69. PREGABALIN [Suspect]
     Active Substance: PREGABALIN
     Indication: Product used for unknown indication
     Route: 065
  70. PYRIDOXINE [Suspect]
     Active Substance: PYRIDOXINE
     Indication: Product used for unknown indication
     Route: 065
  71. REFRESH TEARS [Suspect]
     Active Substance: CARBOXYMETHYLCELLULOSE SODIUM
     Indication: Product used for unknown indication
     Route: 047
  72. SODIUM CHLORIDE [Suspect]
     Active Substance: SODIUM CHLORIDE
     Indication: Product used for unknown indication
     Route: 045
  73. HERBALS [Suspect]
     Active Substance: HERBALS
     Indication: Product used for unknown indication
     Route: 030
  74. SODIUM BICARBONATE\SODIUM CHLORIDE [Suspect]
     Active Substance: SODIUM BICARBONATE\SODIUM CHLORIDE
     Indication: Product used for unknown indication
     Route: 045
  75. CARBOXYMETHYLCELLULOSE SODIUM [Suspect]
     Active Substance: CARBOXYMETHYLCELLULOSE SODIUM
     Indication: Product used for unknown indication
     Route: 065
  76. CARBOXYMETHYLCELLULOSE SODIUM [Suspect]
     Active Substance: CARBOXYMETHYLCELLULOSE SODIUM
     Route: 065
  77. SODIUM STEARATE [Suspect]
     Active Substance: SODIUM STEARATE
     Indication: Product used for unknown indication
     Route: 065
  78. SUCRALFATE [Suspect]
     Active Substance: SUCRALFATE
     Indication: Product used for unknown indication
     Route: 065
  79. SULFAMETHOXAZOLE AND TRIMETHOPRIM [Suspect]
     Active Substance: SULFAMETHOXAZOLE\TRIMETHOPRIM
     Indication: Product used for unknown indication
     Route: 065
  80. TRIAMCINOLONE [Suspect]
     Active Substance: TRIAMCINOLONE
     Indication: Product used for unknown indication
     Route: 065
  81. TRIAMCINOLONE ACETONIDE [Suspect]
     Active Substance: TRIAMCINOLONE ACETONIDE
     Indication: Product used for unknown indication
     Route: 065
  82. TRIMETHOPRIM [Suspect]
     Active Substance: TRIMETHOPRIM
     Indication: Product used for unknown indication
     Route: 065
  83. UBIDECARENONE [Suspect]
     Active Substance: UBIDECARENONE
     Indication: Product used for unknown indication
     Route: 065
  84. VALSARTAN [Suspect]
     Active Substance: VALSARTAN
     Indication: Product used for unknown indication
     Route: 065
  85. VITAMIN D3 [Suspect]
     Active Substance: CHOLECALCIFEROL
     Indication: Product used for unknown indication
     Route: 065
  86. XANTOFYL PALMITATE [Suspect]
     Active Substance: XANTOFYL PALMITATE
     Indication: Product used for unknown indication
     Route: 065
  87. ZOPICLONE [Suspect]
     Active Substance: ZOPICLONE
     Indication: Product used for unknown indication
     Route: 065
  88. ZEAXANTHIN [Suspect]
     Active Substance: ZEAXANTHIN
     Indication: Product used for unknown indication
     Route: 065
  89. ZINC OXIDE [Suspect]
     Active Substance: ZINC OXIDE
     Indication: Product used for unknown indication
     Route: 065

REACTIONS (30)
  - Weight decreased [Not Recovered/Not Resolved]
  - Abdominal pain [Not Recovered/Not Resolved]
  - Anaemia [Not Recovered/Not Resolved]
  - Chronic sinusitis [Not Recovered/Not Resolved]
  - Colitis [Not Recovered/Not Resolved]
  - Colitis ulcerative [Not Recovered/Not Resolved]
  - Constipation [Not Recovered/Not Resolved]
  - Dyspepsia [Not Recovered/Not Resolved]
  - Erythema [Not Recovered/Not Resolved]
  - Female genital tract fistula [Not Recovered/Not Resolved]
  - Frequent bowel movements [Not Recovered/Not Resolved]
  - Haematochezia [Not Recovered/Not Resolved]
  - Headache [Not Recovered/Not Resolved]
  - Infusion related reaction [Not Recovered/Not Resolved]
  - Macular degeneration [Not Recovered/Not Resolved]
  - Malaise [Not Recovered/Not Resolved]
  - Nausea [Not Recovered/Not Resolved]
  - Oral candidiasis [Not Recovered/Not Resolved]
  - Pain [Not Recovered/Not Resolved]
  - Paraesthesia oral [Not Recovered/Not Resolved]
  - Procedural pain [Not Recovered/Not Resolved]
  - Proctitis [Not Recovered/Not Resolved]
  - Pyrexia [Not Recovered/Not Resolved]
  - Radiculopathy [Not Recovered/Not Resolved]
  - Rectal haemorrhage [Not Recovered/Not Resolved]
  - Vaginal discharge [Not Recovered/Not Resolved]
  - Vaginal flatulence [Not Recovered/Not Resolved]
  - Therapeutic product effect incomplete [Not Recovered/Not Resolved]
  - Drug ineffective [Not Recovered/Not Resolved]
  - Off label use [Not Recovered/Not Resolved]
